FAERS Safety Report 15790710 (Version 1)
Quarter: 2018Q4

REPORT INFORMATION
  Report Type: Spontaneous
  Country: US (occurrence: US)
  Receive Date: 20181213
  Receipt Date: 20181213
  Transmission Date: 20190205
  Serious: No
  Sender: FDA-Public Use
  Company Number: None

PATIENT
  Age: 87 Year
  Sex: Female
  Weight: 63.5 kg

DRUGS (10)
  1. METHENAMINE [Concomitant]
     Active Substance: METHENAMINE
  2. MULTI VITAMIN [Concomitant]
     Active Substance: VITAMINS
  3. ELIQUIS [Concomitant]
     Active Substance: APIXABAN
  4. CITRUCEL [Concomitant]
     Active Substance: METHYLCELLULOSE (4000 MPA.S)
  5. LOSARTAN. [Concomitant]
     Active Substance: LOSARTAN
  6. MULTAQ [Suspect]
     Active Substance: DRONEDARONE
     Indication: ATRIAL FIBRILLATION
     Dosage: ?          QUANTITY:400 MG MILLIGRAM(S);OTHER FREQUENCY:1 PILL TWICE A DAY;?
     Route: 048
     Dates: start: 20181101, end: 20181127
  7. VITA D [Concomitant]
  8. TYLENOL PM [Concomitant]
     Active Substance: ACETAMINOPHEN\DIPHENHYDRAMINE
  9. METOPROLOL. [Concomitant]
     Active Substance: METOPROLOL
  10. TYLENOL [Concomitant]
     Active Substance: ACETAMINOPHEN

REACTIONS (7)
  - Abdominal distension [None]
  - Abdominal pain upper [None]
  - Frequent bowel movements [None]
  - Flatulence [None]
  - Fatigue [None]
  - Asthenia [None]
  - Diarrhoea [None]

NARRATIVE: CASE EVENT DATE: 201811
